FAERS Safety Report 10715793 (Version 2)
Quarter: 2015Q1

REPORT INFORMATION
  Report Type: Report from Study
  Country: US (occurrence: US)
  Receive Date: 20150116
  Receipt Date: 20150304
  Transmission Date: 20150721
  Serious: No
  Sender: FDA-Public Use
  Company Number: US-GILEAD-2015-0131958

PATIENT
  Age: 53 Year
  Sex: Female

DRUGS (16)
  1. MIRAPEX [Concomitant]
     Active Substance: PRAMIPEXOLE DIHYDROCHLORIDE
  2. VITAMIN B6 [Concomitant]
     Active Substance: PYRIDOXINE HYDROCHLORIDE
  3. AMBRISENTAN [Suspect]
     Active Substance: AMBRISENTAN
     Indication: PULMONARY ARTERIAL HYPERTENSION
     Dosage: 10 MG, QD
     Route: 065
     Dates: start: 20110108
  4. BECIBASE [Concomitant]
  5. VITAMIN B12 [Concomitant]
     Active Substance: CYANOCOBALAMIN
  6. LIDODERM [Concomitant]
     Active Substance: LIDOCAINE
  7. ALDACTONE [Concomitant]
     Active Substance: SPIRONOLACTONE
  8. COLACE [Concomitant]
     Active Substance: DOCUSATE SODIUM
  9. VENTAVIS [Concomitant]
     Active Substance: ILOPROST
  10. COUMADIN [Concomitant]
     Active Substance: WARFARIN SODIUM
  11. LASIX [Concomitant]
     Active Substance: FUROSEMIDE
  12. BYETTA [Concomitant]
     Active Substance: EXENATIDE
  13. KEPPRA [Concomitant]
     Active Substance: LEVETIRACETAM
  14. CELEBREX [Concomitant]
     Active Substance: CELECOXIB
  15. CENTRUM SILVER                     /02363801/ [Concomitant]
     Active Substance: VITAMINS
  16. POTASSIUM [Concomitant]
     Active Substance: POTASSIUM

REACTIONS (1)
  - Bronchitis [Recovered/Resolved]

NARRATIVE: CASE EVENT DATE: 20141218
